FAERS Safety Report 8289205-X (Version None)
Quarter: 2012Q2

REPORT INFORMATION
  Report Type: 
  Country: None (occurrence: None)
  Receive Date: 20120417
  Receipt Date: 20120409
  Transmission Date: 20120825
  Serious: Yes (Other)
  Sender: FDA-Public Use
  Company Number: PHHY2011CA54477

PATIENT
  Sex: Male

DRUGS (1)
  1. SANDOSTATIN LAR [Suspect]
     Indication: ACROMEGALY
     Dosage: 20 MG, QMO
     Route: 030
     Dates: start: 20110519

REACTIONS (7)
  - NASOPHARYNGITIS [None]
  - CONSTIPATION [None]
  - DIARRHOEA [None]
  - BLOOD PRESSURE INCREASED [None]
  - NAUSEA [None]
  - GASTROENTERITIS VIRAL [None]
  - BLOOD SODIUM DECREASED [None]
